FAERS Safety Report 15244475 (Version 2)
Quarter: 2018Q3

REPORT INFORMATION
  Report Type: Spontaneous
  Country: JP (occurrence: JP)
  Receive Date: 20180806
  Receipt Date: 20180904
  Transmission Date: 20181010
  Serious: Yes (Hospitalization)
  Sender: FDA-Public Use
  Company Number: JP-JNJFOC-20180632297

PATIENT
  Age: 48 Year
  Sex: Male
  Weight: 81.5 kg

DRUGS (5)
  1. DOXORUBICIN HYDROCHLORIDE. [Suspect]
     Active Substance: DOXORUBICIN HYDROCHLORIDE
     Indication: MYXOID LIPOSARCOMA
     Dosage: CYCLE 1
     Route: 042
     Dates: start: 20170802, end: 20170802
  2. DOXORUBICIN HYDROCHLORIDE. [Suspect]
     Active Substance: DOXORUBICIN HYDROCHLORIDE
     Indication: MYXOID LIPOSARCOMA
     Dosage: CYCLE 2 TO 7
     Route: 042
     Dates: start: 20170824, end: 20171221
  3. DEXART [Concomitant]
     Active Substance: DEXAMETHASONE SODIUM PHOSPHATE
     Indication: PROPHYLAXIS OF NAUSEA AND VOMITING
     Route: 042
     Dates: start: 20180116, end: 20180208
  4. YONDELIS [Suspect]
     Active Substance: TRABECTEDIN
     Indication: MYXOID LIPOSARCOMA
     Dosage: 24?HOUR INFUSION
     Route: 042
     Dates: start: 20180116, end: 20180208
  5. DECADRON [Concomitant]
     Active Substance: DEXAMETHASONE
     Indication: PROPHYLAXIS OF NAUSEA AND VOMITING
     Route: 048
     Dates: start: 20180117, end: 20180211

REACTIONS (4)
  - Cardiac failure [Recovering/Resolving]
  - Pyrexia [Unknown]
  - Neutropenia [Unknown]
  - Atrial fibrillation [Recovering/Resolving]

NARRATIVE: CASE EVENT DATE: 20180117
